FAERS Safety Report 9503828 (Version 1)
Quarter: 2013Q3

REPORT INFORMATION
  Report Type: Spontaneous
  Country: US (occurrence: None)
  Receive Date: 20130905
  Receipt Date: 20130905
  Transmission Date: 20140515
  Serious: Yes (Other)
  Sender: FDA-Public Use
  Company Number: None

PATIENT
  Age: 52 Year
  Sex: Female
  Weight: 44.45 kg

DRUGS (1)
  1. LIQUID CORN AND CALLUS REMOVER [Suspect]
     Indication: HYPERKERATOSIS
     Dates: start: 20130830, end: 20130903

REACTIONS (7)
  - Infection [None]
  - Erythema [None]
  - Skin discolouration [None]
  - Purulence [None]
  - Laceration [None]
  - Pain [None]
  - Burning sensation [None]
